FAERS Safety Report 17171489 (Version 1)
Quarter: 2019Q4

REPORT INFORMATION
  Report Type: Spontaneous
  Country: DE (occurrence: DE)
  Receive Date: 20191218
  Receipt Date: 20191218
  Transmission Date: 20200122
  Serious: Yes (Life-Threatening, Hospitalization, Other)
  Sender: FDA-Public Use
  Company Number: DE-ASTRAZENECA-2019SF82395

PATIENT
  Age: 84 Year
  Sex: Female

DRUGS (4)
  1. DENOSUMAB [Concomitant]
     Active Substance: DENOSUMAB
  2. PALBOCICLIB [Concomitant]
     Active Substance: PALBOCICLIB
  3. LETROZOLE. [Concomitant]
     Active Substance: LETROZOLE
  4. FASLODEX [Suspect]
     Active Substance: FULVESTRANT
     Indication: BREAST CANCER METASTATIC
     Route: 030

REACTIONS (5)
  - Bone marrow disorder [Unknown]
  - Sepsis [Unknown]
  - Breast cancer recurrent [Unknown]
  - Malignant neoplasm progression [Unknown]
  - Vein disorder [Unknown]
